FAERS Safety Report 8838998 (Version 5)
Quarter: 2013Q3

REPORT INFORMATION
  Report Type: Spontaneous
  Country: US (occurrence: US)
  Receive Date: 20121015
  Receipt Date: 20130912
  Transmission Date: 20140515
  Serious: No
  Sender: FDA-Public Use
  Company Number: US-BIOGENIDEC-2012BI042482

PATIENT
  Age: 32 Year
  Sex: Female

DRUGS (3)
  1. TYSABRI [Suspect]
     Indication: MULTIPLE SCLEROSIS
     Route: 042
     Dates: start: 20120926
  2. TYLENOL [Concomitant]
     Indication: HEADACHE
  3. BACLOFEN [Concomitant]
     Indication: MUSCLE SPASMS

REACTIONS (23)
  - Abdominal discomfort [Not Recovered/Not Resolved]
  - Urinary hesitation [Recovered/Resolved]
  - Urinary retention [Not Recovered/Not Resolved]
  - Muscle spasms [Recovered/Resolved]
  - Insomnia [Unknown]
  - Hallucination [Recovered/Resolved]
  - Muscle atrophy [Not Recovered/Not Resolved]
  - Vision blurred [Recovered/Resolved]
  - Frustration [Not Recovered/Not Resolved]
  - Balance disorder [Not Recovered/Not Resolved]
  - Feeling abnormal [Not Recovered/Not Resolved]
  - Somnolence [Recovered/Resolved with Sequelae]
  - Paraesthesia [Recovered/Resolved]
  - Chills [Recovered/Resolved]
  - Multiple sclerosis relapse [Not Recovered/Not Resolved]
  - Headache [Recovered/Resolved with Sequelae]
  - Arthralgia [Not Recovered/Not Resolved]
  - Cystitis [Recovered/Resolved with Sequelae]
  - Malaise [Not Recovered/Not Resolved]
  - Fatigue [Recovered/Resolved with Sequelae]
  - Oropharyngeal pain [Not Recovered/Not Resolved]
  - Flushing [Recovered/Resolved]
  - Urinary tract infection [Recovered/Resolved]
